FAERS Safety Report 6643185-9 (Version None)
Quarter: 2010Q1

REPORT INFORMATION
  Report Type: 
  Country: None (occurrence: None)
  Receive Date: 20100319
  Receipt Date: 20100315
  Transmission Date: 20100710
  Serious: Yes (Death)
  Sender: FDA-Public Use
  Company Number: PHEH2010US02877

PATIENT
  Sex: Female
  Weight: 56.689 kg

DRUGS (1)
  1. EXJADE [Suspect]
     Dosage: 1000 MG, BID
     Route: 048
     Dates: start: 20091006, end: 20100127

REACTIONS (1)
  - ACUTE MYELOID LEUKAEMIA [None]
